FAERS Safety Report 5659767-7 (Version None)
Quarter: 2008Q1

REPORT INFORMATION
  Report Type: 
  Country: None (occurrence: None)
  Receive Date: 20080311
  Receipt Date: 20070710
  Transmission Date: 20080703
  Serious: No
  Sender: FDA-Public Use
  Company Number: US-BAYER-200712191BCC

PATIENT
  Age: 47 Year
  Sex: Male
  Weight: 100 kg

DRUGS (7)
  1. ALEVE [Suspect]
     Indication: MYALGIA
     Dosage: UNIT DOSE: 220 MG
     Route: 048
     Dates: start: 20070708
  2. ASPIRIN [Suspect]
     Indication: DRUG USE FOR UNKNOWN INDICATION
     Dosage: TOTAL DAILY DOSE: 81 MG  UNIT DOSE: 81 MG
     Route: 048
  3. VITAMINS [Concomitant]
  4. ONE SOURCE VITAMINS [Concomitant]
  5. NIACIN [Concomitant]
  6. SAW PALMETTO [Concomitant]
  7. FISH OIL [Concomitant]

REACTIONS (1)
  - URTICARIA [None]
